FAERS Safety Report 17403028 (Version 2)
Quarter: 2020Q2

REPORT INFORMATION
  Report Type: Report from Study
  Country: IT (occurrence: IT)
  Receive Date: 20200211
  Receipt Date: 20200428
  Transmission Date: 20200713
  Serious: Yes (Other)
  Sender: FDA-Public Use
  Company Number: IT-PFIZER INC-2020059624

PATIENT
  Age: 80 Year
  Sex: Female

DRUGS (12)
  1. XANAX [Suspect]
     Active Substance: ALPRAZOLAM
     Dosage: 2 DF, 1X/DAY
     Route: 048
     Dates: start: 20190101, end: 20191208
  2. GABAPENTIN. [Suspect]
     Active Substance: GABAPENTIN
     Dosage: 1800 MG, 1X/DAY
     Route: 048
     Dates: start: 20190101, end: 20191208
  3. CEFTRIAXONE. [Concomitant]
     Active Substance: CEFTRIAXONE
     Dosage: 2 G, UNK
     Route: 048
  4. HALCION [Suspect]
     Active Substance: TRIAZOLAM
     Indication: INSOMNIA
     Dosage: UNK
     Route: 048
     Dates: start: 20190101, end: 20191208
  5. PRADAXA [Concomitant]
     Active Substance: DABIGATRAN ETEXILATE MESYLATE
     Dosage: UNK
     Route: 048
  6. PALEXIA [Suspect]
     Active Substance: TAPENTADOL HYDROCHLORIDE
     Indication: PAIN
     Dosage: 2 DF, 1X/DAY
     Route: 048
     Dates: start: 20190101, end: 20191208
  7. LIORESAL [Concomitant]
     Active Substance: BACLOFEN
     Dosage: 3 DF, UNK
     Route: 048
  8. MEDROL [Concomitant]
     Active Substance: METHYLPREDNISOLONE
     Dosage: UNK
     Route: 048
  9. CIPRALEX [Suspect]
     Active Substance: ESCITALOPRAM OXALATE
     Indication: DEPRESSION
     Dosage: UNK
     Route: 048
     Dates: start: 20190101, end: 20191208
  10. TORVAST [Concomitant]
     Active Substance: ATORVASTATIN
     Dosage: 10 IU/KG, UNK
     Route: 048
  11. TAREG [Concomitant]
     Active Substance: VALSARTAN
     Dosage: UNK
     Route: 048
  12. DILZENE [Concomitant]
     Active Substance: DILTIAZEM HYDROCHLORIDE
     Dosage: 3 DF, UNK
     Route: 048

REACTIONS (2)
  - Overdose [Recovering/Resolving]
  - Sopor [Recovering/Resolving]

NARRATIVE: CASE EVENT DATE: 20191208
